FAERS Safety Report 25647055 (Version 1)
Quarter: 2025Q3

REPORT INFORMATION
  Report Type: Report from Study
  Country: US (occurrence: US)
  Receive Date: 20250806
  Receipt Date: 20250806
  Transmission Date: 20251020
  Serious: Yes (Hospitalization)
  Sender: ABBVIE
  Company Number: US-ABBVIE-6399844

PATIENT
  Sex: Female

DRUGS (2)
  1. IMBRUVICA [Suspect]
     Active Substance: IBRUTINIB
     Indication: Chronic lymphocytic leukaemia
     Route: 048
     Dates: start: 202408
  2. IMBRUVICA [Suspect]
     Active Substance: IBRUTINIB
     Indication: Chronic lymphocytic leukaemia
     Dosage: MISSED 3 DOSES
     Route: 048

REACTIONS (6)
  - Cervicogenic headache [Unknown]
  - Frequent bowel movements [Unknown]
  - Fatigue [Unknown]
  - Asthenia [Unknown]
  - Temperature intolerance [Unknown]
  - Adverse drug reaction [Unknown]
